FAERS Safety Report 7673672-6 (Version None)
Quarter: 2011Q3

REPORT INFORMATION
  Report Type: 
  Country: None (occurrence: None)
  Receive Date: 20110810
  Receipt Date: 20110801
  Transmission Date: 20111222
  Serious: Yes (Hospitalization, Other)
  Sender: FDA-Public Use
  Company Number: US-US-EMD SERONO, INC.-7066264

PATIENT
  Sex: Male

DRUGS (3)
  1. UNSPECIFIED TREATMENT [Concomitant]
     Indication: DIABETES MELLITUS INADEQUATE CONTROL
  2. REBIF [Suspect]
     Indication: PRODUCT USED FOR UNKNOWN INDICATION
     Route: 058
     Dates: start: 20110318
  3. CYMBALTA [Concomitant]
     Indication: DEPRESSION

REACTIONS (7)
  - DEMENTIA WITH LEWY BODIES [None]
  - BLOOD GLUCOSE INCREASED [None]
  - PERSONALITY CHANGE [None]
  - HIP FRACTURE [None]
  - FALL [None]
  - DEPRESSION [None]
  - STENT PLACEMENT [None]
